FAERS Safety Report 9403620 (Version 6)
Quarter: 2014Q1

REPORT INFORMATION
  Report Type: Report from Study
  Country: US (occurrence: US)
  Receive Date: 20130717
  Receipt Date: 20140114
  Transmission Date: 20141002
  Serious: No
  Sender: FDA-Public Use
  Company Number: US-009507513-1307USA007857

PATIENT
  Sex: Female
  Weight: 135.15 kg

DRUGS (10)
  1. VICTRELIS [Suspect]
     Indication: CHRONIC HEPATITIS C
     Dosage: UNK
     Dates: start: 20130607
  2. RIBAVIRIN [Suspect]
     Indication: CHRONIC HEPATITIS C
     Dosage: 1200 MG PER DAY IN DIVIDED DOSES
     Dates: start: 20130607
  3. RIBAVIRIN [Suspect]
     Dosage: 800 MG, QD
  4. PEGASYS [Suspect]
     Indication: CHRONIC HEPATITIS C
     Dosage: 180 MICROGRAM, QW, PROCLICK AUTOINJECTOR
     Dates: start: 20130607
  5. LEXAPRO [Concomitant]
  6. ADVAIR [Concomitant]
  7. SALMETEROL [Concomitant]
  8. DIOVAN [Concomitant]
  9. TENORMIN [Concomitant]
  10. LASIX (FUROSEMIDE) [Concomitant]

REACTIONS (28)
  - Pain in extremity [Recovered/Resolved]
  - Feeling cold [Unknown]
  - Skin odour abnormal [Unknown]
  - Paraesthesia [Recovered/Resolved]
  - Hypoaesthesia [Recovered/Resolved]
  - Abdominal discomfort [Unknown]
  - Pollakiuria [Unknown]
  - Hypotension [Unknown]
  - Dyspnoea exertional [Unknown]
  - Abdominal pain upper [Unknown]
  - Palpitations [Unknown]
  - Parosmia [Unknown]
  - Anxiety [Unknown]
  - Influenza like illness [Unknown]
  - Pruritus [Unknown]
  - Headache [Unknown]
  - Fatigue [Not Recovered/Not Resolved]
  - Decreased appetite [Unknown]
  - Nausea [Not Recovered/Not Resolved]
  - Asthenia [Unknown]
  - Irritability [Unknown]
  - Vomiting [Unknown]
  - Anaemia [Unknown]
  - Dysgeusia [Unknown]
  - Dry mouth [Unknown]
  - Vomiting [Unknown]
  - Red blood cell count decreased [Unknown]
  - White blood cell count decreased [Unknown]
